FAERS Safety Report 24620851 (Version 1)
Quarter: 2024Q4

REPORT INFORMATION
  Report Type: Spontaneous
  Country: JP (occurrence: JP)
  Receive Date: 20241114
  Receipt Date: 20241114
  Transmission Date: 20250115
  Serious: Yes (Other)
  Sender: ROCHE
  Company Number: JP-CHUGAI-2024038961AA

PATIENT
  Age: 48 Year
  Sex: Male

DRUGS (4)
  1. CELLCEPT [Suspect]
     Active Substance: MYCOPHENOLATE MOFETIL
     Indication: Prophylaxis against transplant rejection
     Dosage: UNK
     Route: 050
  2. CYCLOSPORINE [Concomitant]
     Active Substance: CYCLOSPORINE
     Dosage: 250 MILLIGRAM
     Route: 050
  3. EVEROLIMUS [Concomitant]
     Active Substance: EVEROLIMUS
     Dosage: 1.5 MILLIGRAM
     Route: 050
  4. MERCAPTOPURINE [Concomitant]
     Active Substance: MERCAPTOPURINE
     Dosage: 4 MILLIGRAM
     Route: 050

REACTIONS (6)
  - Disseminated intravascular coagulation [Unknown]
  - Renal infarct [Unknown]
  - Acute kidney injury [Unknown]
  - Septic shock [Unknown]
  - Emphysematous pyelonephritis [Unknown]
  - Cytomegalovirus test positive [Unknown]
